FAERS Safety Report 11907436 (Version 1)
Quarter: 2016Q1

REPORT INFORMATION
  Report Type: Spontaneous
  Country: CL (occurrence: CL)
  Receive Date: 20160111
  Receipt Date: 20160111
  Transmission Date: 20160526
  Serious: Yes (Other)
  Sender: FDA-Public Use
  Company Number: CL-PFIZER INC-2016006216

PATIENT
  Age: 63 Year
  Sex: Female

DRUGS (4)
  1. HUMIRA [Suspect]
     Active Substance: ADALIMUMAB
     Indication: RHEUMATOID ARTHRITIS
     Dosage: 40 MG, ONCE IN 28 DAYS
     Route: 058
     Dates: start: 20140514, end: 20151128
  2. TOFACITINIB CITRATE [Suspect]
     Active Substance: TOFACITINIB CITRATE
     Indication: RHEUMATOID ARTHRITIS
     Dosage: 2 DF, DAILY
     Dates: start: 20151130, end: 20151214
  3. METHOTREXATE [Concomitant]
     Active Substance: METHOTREXATE
  4. HUMIRA [Suspect]
     Active Substance: ADALIMUMAB
     Dosage: ONCE IN 15 DAYS
     Route: 058
     Dates: start: 20151215

REACTIONS (3)
  - Arthralgia [Recovered/Resolved]
  - Joint swelling [Unknown]
  - Abasia [Unknown]

NARRATIVE: CASE EVENT DATE: 2015
